FAERS Safety Report 6826916-4 (Version None)
Quarter: 2010Q3

REPORT INFORMATION
  Report Type: 
  Country: None (occurrence: None)
  Receive Date: 20100709
  Receipt Date: 20100705
  Transmission Date: 20110219
  Serious: Yes (Hospitalization, Other)
  Sender: FDA-Public Use
  Company Number: BR-ROCHE-713498

PATIENT
  Sex: Female
  Weight: 49 kg

DRUGS (8)
  1. BONIVA [Suspect]
     Indication: OSTEOPOROSIS
     Route: 065
     Dates: start: 20070101, end: 20080101
  2. BONIVA [Suspect]
     Route: 065
     Dates: start: 20100401
  3. LEXOTAN [Suspect]
     Indication: NERVOUSNESS
     Dosage: FREQUENCY: WHEN NECESSARY (APPROXIMATELY 1 TABLET PER WEEK)
     Route: 048
     Dates: start: 20060101
  4. TRAVATAN [Concomitant]
     Indication: GLAUCOMA
     Dosage: FREQUENCY: 1 DROP/ EYE/ DAY
     Route: 047
     Dates: start: 20060101, end: 20090101
  5. XALATAN [Concomitant]
     Indication: GLAUCOMA
     Dosage: FREQUENCY: 1 DROP/EYE/DAY
     Route: 047
     Dates: start: 20091001
  6. ISOFLAVONES [Concomitant]
     Indication: HORMONE REPLACEMENT THERAPY
     Dosage: INDICATION: HORMONE (HORMONE REPLACEMENT).
     Dates: start: 20090301
  7. SELOZOK [Concomitant]
     Dosage: 1/2 TABLET PER DAY.
     Dates: start: 20090101
  8. COLPOTROPHINE [Concomitant]
     Indication: HORMONE REPLACEMENT THERAPY
     Dosage: DRUG NAME: COLPOTROFINE, INDICATION HORMONE REPLACEMENT (VAGINAL OINTMENT).
     Route: 067
     Dates: start: 20080901

REACTIONS (5)
  - BLOOD CHOLESTEROL INCREASED [None]
  - DRY EYE [None]
  - PNEUMONIA [None]
  - PYREXIA [None]
  - SKIN CANCER [None]
